FAERS Safety Report 18297343 (Version 1)
Quarter: 2020Q3

REPORT INFORMATION
  Report Type: Spontaneous
  Country: ES (occurrence: ES)
  Receive Date: 20200923
  Receipt Date: 20200923
  Transmission Date: 20201103
  Serious: Yes (Life-Threatening, Hospitalization, Other)
  Sender: FDA-Public Use
  Company Number: ES-AUROBINDO-AUR-APL-2020-048703

PATIENT
  Age: 74 Year
  Sex: Male

DRUGS (1)
  1. OXALIPLATIN. [Suspect]
     Active Substance: OXALIPLATIN
     Indication: ADENOCARCINOMA OF COLON
     Dosage: 115.8 MILLIGRAM, 1 IN TOTAL
     Route: 042
     Dates: start: 20200629, end: 20200813

REACTIONS (3)
  - Hypertensive crisis [Recovered/Resolved]
  - Bronchospasm [Recovered/Resolved]
  - Cytokine storm [Recovered/Resolved]

NARRATIVE: CASE EVENT DATE: 20200813
